FAERS Safety Report 8129956-0 (Version None)
Quarter: 2012Q1

REPORT INFORMATION
  Report Type: 
  Country: None (occurrence: None)
  Receive Date: 20120210
  Receipt Date: 20120206
  Transmission Date: 20120608
  Serious: Yes (Other)
  Sender: FDA-Public Use
  Company Number: US-ROCHE-794306

PATIENT
  Sex: Female
  Weight: 68.1 kg

DRUGS (1)
  1. ACCUTANE [Suspect]
     Indication: ACNE CYSTIC
     Route: 065
     Dates: start: 19870521, end: 19871119

REACTIONS (8)
  - DEPRESSION [None]
  - INFLAMMATORY BOWEL DISEASE [None]
  - CROHN'S DISEASE [None]
  - BLOOD TRIGLYCERIDES INCREASED [None]
  - IRRITABLE BOWEL SYNDROME [None]
  - COLITIS [None]
  - BLOOD CHOLESTEROL INCREASED [None]
  - PANIC ATTACK [None]
